FAERS Safety Report 7352788-8 (Version None)
Quarter: 2011Q1

REPORT INFORMATION
  Report Type: 
  Country: None (occurrence: None)
  Receive Date: 20110302
  Receipt Date: 20100722
  Transmission Date: 20110831
  Serious: Yes (Other)
  Sender: FDA-Public Use
  Company Number: 311883

PATIENT
  Age: 67 Year
  Sex: Male
  Weight: 99.8 kg

DRUGS (9)
  1. CARVEDILOL [Concomitant]
  2. NOVOLIN R [Suspect]
     Indication: TYPE 1 DIABETES MELLITUS
     Dosage: SLIDING SCALE BEFORE MEALS, SUBCUTANEOUS
     Route: 058
     Dates: start: 20091101
  3. FINASTERIDE [Concomitant]
  4. LANTUS [Concomitant]
  5. SIMVASTATIN [Concomitant]
  6. THYROID TAB [Concomitant]
  7. AGGRENOX [Concomitant]
  8. AMLODIPINE [Concomitant]
  9. BENAZEPRIL HYDROCHLORIDE (BENAZEPRIL HYDROCHLORIDE) [Concomitant]

REACTIONS (1)
  - HYPOGLYCAEMIC UNCONSCIOUSNESS [None]
